FAERS Safety Report 6940632-X (Version None)
Quarter: 2010Q3

REPORT INFORMATION
  Report Type: 
  Country: None (occurrence: None)
  Receive Date: 20100825
  Receipt Date: 20100817
  Transmission Date: 20110219
  Serious: Yes (Hospitalization, Other)
  Sender: FDA-Public Use
  Company Number: CA-ABBOTT-10P-028-0656988-00

PATIENT
  Sex: Female
  Weight: 81.72 kg

DRUGS (7)
  1. HUMIRA [Suspect]
     Indication: COLITIS ULCERATIVE
     Route: 058
     Dates: start: 20091218, end: 20100630
  2. SYNTHROID [Concomitant]
     Indication: THYROID DISORDER
     Dosage: 0.12 MG DAILY
     Route: 048
  3. MORPHINE STATEX [Concomitant]
     Indication: PAIN
     Dosage: 5 MG DAILY
     Route: 048
     Dates: start: 20100601
  4. PURINETHOL [Concomitant]
     Indication: COLITIS
     Dosage: 50 MG DAILY
     Route: 048
     Dates: start: 20100101
  5. CALCIUM [Concomitant]
     Indication: MINERAL SUPPLEMENTATION
     Dosage: 2- 500 MG TABLETS DAILY
     Route: 048
  6. EURO D [Concomitant]
     Indication: VITAMIN SUPPLEMENTATION
     Dosage: 400 MG DAILY
     Route: 048
  7. ACTONEL [Concomitant]
     Indication: PRODUCT USED FOR UNKNOWN INDICATION
     Route: 048

REACTIONS (5)
  - ABDOMINAL PAIN [None]
  - DIARRHOEA [None]
  - INTESTINAL FUNCTIONAL DISORDER [None]
  - PROCTITIS [None]
  - VOLVULUS OF SMALL BOWEL [None]
